FAERS Safety Report 9632290 (Version 4)
Quarter: 2014Q1

REPORT INFORMATION
  Report Type: Spontaneous
  Country: US (occurrence: US)
  Receive Date: 20131018
  Receipt Date: 20140107
  Transmission Date: 20141002
  Serious: Yes (Hospitalization)
  Sender: FDA-Public Use
  Company Number: US-BIOGENIDEC-2013BI097235

PATIENT
  Age: 31 Year
  Sex: Male

DRUGS (8)
  1. CELEBREX [Concomitant]
     Route: 048
  2. BACLOFEN [Concomitant]
     Route: 048
  3. LISINOPRIL [Concomitant]
     Route: 048
  4. NICOTINE [Concomitant]
  5. CYANOCOBALAMIN [Concomitant]
     Route: 048
  6. TYSABRI [Suspect]
     Indication: MULTIPLE SCLEROSIS
     Route: 042
     Dates: start: 20080111, end: 20130425
  7. TECFIDERA [Concomitant]
     Indication: MULTIPLE SCLEROSIS
     Route: 048
     Dates: start: 2013, end: 201310
  8. GABAPENTIN [Concomitant]
     Route: 048

REACTIONS (4)
  - Multiple sclerosis [Not Recovered/Not Resolved]
  - Multiple sclerosis relapse [Unknown]
  - Jaw fracture [Not Recovered/Not Resolved]
  - Fall [Recovered/Resolved]
